FAERS Safety Report 6260401-6 (Version None)
Quarter: 2009Q3

REPORT INFORMATION
  Report Type: 
  Country: None (occurrence: None)
  Receive Date: 20090708
  Receipt Date: 20090630
  Transmission Date: 20100115
  Serious: Yes (Death, Hospitalization)
  Sender: FDA-Public Use
  Company Number: US-MERCK-0907USA00095

PATIENT
  Sex: Female

DRUGS (3)
  1. ISENTRESS [Suspect]
     Indication: HIV INFECTION
     Route: 048
     Dates: start: 20090101
  2. TRUVADA [Concomitant]
     Route: 065
  3. ETRAVIRINE [Concomitant]
     Route: 065

REACTIONS (1)
  - ACUTE HEPATIC FAILURE [None]
